FAERS Safety Report 12728138 (Version 1)
Quarter: 2016Q3

REPORT INFORMATION
  Report Type: Report from Study
  Country: CN (occurrence: CN)
  Receive Date: 20160909
  Receipt Date: 20160909
  Transmission Date: 20161109
  Serious: Yes (Hospitalization)
  Sender: FDA-Public Use
  Company Number: CN-BAYER-2016-173841

PATIENT

DRUGS (7)
  1. CLOPIDOGREL [Interacting]
     Active Substance: CLOPIDOGREL BISULFATE
     Dosage: 75 MG, QD
     Route: 048
     Dates: start: 20101217, end: 20101218
  2. TIROFIBAN [Interacting]
     Active Substance: TIROFIBAN
     Dosage: UNK UNK, ONCE
     Route: 042
  3. ESOMEPRAZOLE [Concomitant]
     Active Substance: ESOMEPRAZOLE
  4. ASPIRIN. [Suspect]
     Active Substance: ASPIRIN
     Indication: ACUTE CORONARY SYNDROME
     Dosage: 100 MG, QD
  5. TIROFIBAN [Interacting]
     Active Substance: TIROFIBAN
     Dosage: UNK
     Route: 042
  6. HEPARIN [Interacting]
     Active Substance: HEPARIN SODIUM
     Dosage: 70 IU/KG, ONCE
     Route: 042
  7. CLOPIDOGREL [Interacting]
     Active Substance: CLOPIDOGREL BISULFATE
     Dosage: 300 MG, ONCE (LOADING DOSE 300MG DURING PCI PROCEDURAL)

REACTIONS (3)
  - Drug administration error [Recovered/Resolved]
  - Labelled drug-drug interaction medication error [Recovered/Resolved]
  - Haemoglobin abnormal [Recovered/Resolved]

NARRATIVE: CASE EVENT DATE: 20101217
